FAERS Safety Report 4345690-7 (Version None)
Quarter: 2004Q2

REPORT INFORMATION
  Report Type: 
  Country: None (occurrence: None)
  Receive Date: 20040421
  Receipt Date: 20040406
  Transmission Date: 20050107
  Serious: No
  Sender: FDA-Public Use
  Company Number: 236277

PATIENT
  Age: 43 Year
  Sex: Female
  Weight: 54.4 kg

DRUGS (2)
  1. NOVOLOG [Suspect]
     Indication: DIABETES MELLITUS INSULIN-DEPENDENT
     Dosage: 25-30 IU, QD, SUBCUTANEOUS
     Route: 058
     Dates: start: 20040201, end: 20040327
  2. MINI MED 58 INSULIN PUMP [Concomitant]

REACTIONS (3)
  - INFUSION SITE ABSCESS [None]
  - INFUSION SITE INFECTION [None]
  - PHARMACEUTICAL PRODUCT COMPLAINT [None]
